FAERS Safety Report 6642738-1 (Version None)
Quarter: 2010Q1

REPORT INFORMATION
  Report Type: 
  Country: None (occurrence: None)
  Receive Date: 20100319
  Receipt Date: 20100310
  Transmission Date: 20100710
  Serious: Yes (Other)
  Sender: FDA-Public Use
  Company Number: BR-PFIZER INC-2010031009

PATIENT
  Age: 77 Year
  Sex: Female
  Weight: 54 kg

DRUGS (5)
  1. LIPITOR [Suspect]
     Indication: BLOOD CHOLESTEROL INCREASED
     Dosage: 40 MG, 1X/DAY
     Route: 048
     Dates: start: 20100301
  2. ATACAND [Concomitant]
     Indication: HYPERTENSION
     Dosage: UNK
  3. ATENOLOL [Concomitant]
     Indication: HYPERTENSION
     Dosage: UNK
  4. FLUOXETINE [Concomitant]
     Indication: DEPRESSION
     Dosage: UNK
  5. ALPRAZOLAM [Concomitant]
     Indication: INSOMNIA
     Dosage: UNK

REACTIONS (4)
  - DRY EYE [None]
  - DRY SKIN [None]
  - HYPERSENSITIVITY [None]
  - VISION BLURRED [None]
